FAERS Safety Report 15362109 (Version 1)
Quarter: 2018Q3

REPORT INFORMATION
  Report Type: Spontaneous
  Country: US (occurrence: US)
  Receive Date: 20180907
  Receipt Date: 20180907
  Transmission Date: 20181010
  Serious: Yes (Other)
  Sender: FDA-Public Use
  Company Number: US-FRESENIUS KABI-FK201809385

PATIENT
  Age: 7 Year
  Sex: Male

DRUGS (4)
  1. ETOPOSIDE (MANUFACTURER UNKNOWN) [Suspect]
     Active Substance: ETOPOSIDE
     Indication: HODGKIN^S DISEASE NODULAR SCLEROSIS
     Dosage: ON DAYS 1?3
     Route: 042
  2. CARBOPLATIN (MANUFACTURER UNKNOWN) [Suspect]
     Active Substance: CARBOPLATIN
     Indication: HODGKIN^S DISEASE NODULAR SCLEROSIS
     Dosage: ON DAY 1
     Route: 042
  3. GRANULOCYTE?COLONY STIMULATING FACTOR [Concomitant]
     Active Substance: FILGRASTIM
     Indication: SUPPORTIVE CARE
  4. IFOSFAMIDE (MANUFACTURER UNKNOWN) [Suspect]
     Active Substance: IFOSFAMIDE
     Indication: HODGKIN^S DISEASE NODULAR SCLEROSIS
     Dosage: ON DAYS 1?3
     Route: 042

REACTIONS (4)
  - Neutropenia [Unknown]
  - Ataxia [Unknown]
  - Cholecystitis [Unknown]
  - Vomiting [Unknown]
